FAERS Safety Report 11148644 (Version 1)
Quarter: 2015Q2

REPORT INFORMATION
  Report Type: Spontaneous
  Country: NO (occurrence: NO)
  Receive Date: 20150529
  Receipt Date: 20150529
  Transmission Date: 20150821
  Serious: Yes (Hospitalization)
  Sender: FDA-Public Use
  Company Number: NO-TEVA-565086ISR

PATIENT
  Age: 68 Year
  Sex: Female

DRUGS (8)
  1. RITUXIMAB [Concomitant]
     Active Substance: RITUXIMAB
  2. CYCLOPHOSPHAMIDE. [Concomitant]
     Active Substance: CYCLOPHOSPHAMIDE
  3. METHOTREXATE [Suspect]
     Active Substance: METHOTREXATE
     Indication: DIFFUSE LARGE B-CELL LYMPHOMA
     Dosage: 3RD INJECTION, PART OF A TREATMENT PLAN
     Route: 042
     Dates: start: 20150423
  4. ALLERAMIN [Interacting]
     Active Substance: PERILLA FRUTESCENS LEAF
  5. PREDNISOLONE. [Concomitant]
     Active Substance: PREDNISOLONE
  6. DOXORUBICIN ACCORD [Concomitant]
     Active Substance: DOXORUBICIN HYDROCHLORIDE
  7. VINCRISTINE [Concomitant]
     Active Substance: VINCRISTINE
  8. FOLIC ACID. [Concomitant]
     Active Substance: FOLIC ACID

REACTIONS (1)
  - Drug interaction [Recovered/Resolved]

NARRATIVE: CASE EVENT DATE: 201504
